FAERS Safety Report 9871298 (Version 2)
Quarter: 2014Q1

REPORT INFORMATION
  Report Type: Spontaneous
  Country: DE (occurrence: DE)
  Receive Date: 20140205
  Receipt Date: 20140210
  Transmission Date: 20141002
  Serious: Yes (Hospitalization)
  Sender: FDA-Public Use
  Company Number: DE-GLAXOSMITHKLINE-D0082677A

PATIENT
  Sex: Male

DRUGS (2)
  1. VIANI [Suspect]
     Dosage: 300MCG TWICE PER DAY
     Route: 055
     Dates: start: 200901, end: 201401
  2. ANTRA MUPS [Concomitant]
     Route: 065

REACTIONS (1)
  - Bladder neoplasm [Unknown]
